FAERS Safety Report 16625927 (Version 1)
Quarter: 2019Q3

REPORT INFORMATION
  Report Type: Spontaneous
  Country: US (occurrence: US)
  Receive Date: 20190724
  Receipt Date: 20190724
  Transmission Date: 20191004
  Serious: Yes (Other)
  Sender: FDA-Public Use
  Company Number: US-BAUSCH-BL-2019-020437

PATIENT
  Age: 68 Year
  Sex: Female
  Weight: 59.02 kg

DRUGS (3)
  1. VYZULTA [Suspect]
     Active Substance: LATANOPROSTENE BUNOD
     Indication: GLAUCOMA
     Dosage: START DATE: SIX TO EIGHT MONTHS AGO, ONE DROP IN EACH EYE AT BEDTIME
     Route: 047
  2. LUMIGAN [Suspect]
     Active Substance: BIMATOPROST
     Indication: INTRAOCULAR PRESSURE INCREASED
     Dosage: DISCONTINUED USE OF LUMIGAN AFTER ^SIX TO EIGHT WEEKS^ OF USE
     Route: 047
     Dates: end: 2019
  3. COSOPT [Concomitant]
     Active Substance: DORZOLAMIDE HYDROCHLORIDE\TIMOLOL MALEATE
     Indication: PRODUCT USED FOR UNKNOWN INDICATION
     Route: 047

REACTIONS (6)
  - Eye laser surgery [Unknown]
  - Dry eye [Recovering/Resolving]
  - Expulsion of medication [Unknown]
  - Condition aggravated [Unknown]
  - Expired product administered [Unknown]
  - Intraocular pressure increased [Unknown]

NARRATIVE: CASE EVENT DATE: 2019
